FAERS Safety Report 24212142 (Version 1)
Quarter: 2024Q3

REPORT INFORMATION
  Report Type: Spontaneous
  Country: BR (occurrence: BR)
  Receive Date: 20240815
  Receipt Date: 20240815
  Transmission Date: 20241016
  Serious: Yes (Hospitalization, Other)
  Sender: CHEPLAPHARM
  Company Number: BR-ROCHE-2349072

PATIENT
  Age: 65 Year
  Sex: Female

DRUGS (22)
  1. CLONAZEPAM [Suspect]
     Active Substance: CLONAZEPAM
     Indication: Product used for unknown indication
     Dosage: AT NIGHT
  2. CLONAZEPAM [Suspect]
     Active Substance: CLONAZEPAM
     Indication: Product used for unknown indication
     Dosage: AT NIGHT
  3. BENSERAZIDE\LEVODOPA [Suspect]
     Active Substance: BENSERAZIDE\LEVODOPA
     Indication: Parkinson^s disease
     Dosage: 200/50 MG - 6 TIMES A DAY
  4. BENSERAZIDE\LEVODOPA [Suspect]
     Active Substance: BENSERAZIDE\LEVODOPA
     Indication: Parkinson^s disease
     Dosage: 200/50 MG - 4 TIMES A DAY
  5. BENSERAZIDE\LEVODOPA [Suspect]
     Active Substance: BENSERAZIDE\LEVODOPA
     Indication: Parkinson^s disease
     Dosage: HBS (HYDRODYNAMICALLY BALANCED SYSTEM)?100/25 MG - ONCE A DAY
  6. BENSERAZIDE\LEVODOPA [Suspect]
     Active Substance: BENSERAZIDE\LEVODOPA
     Indication: Parkinson^s disease
     Dosage: BD?100/25 MG - 2 TABLETS, 5 TIMES A DAY
  7. BENSERAZIDE\LEVODOPA [Suspect]
     Active Substance: BENSERAZIDE\LEVODOPA
     Indication: Parkinson^s disease
     Dosage: BD?100/25 MG - 2 TABLETS, TWICE A DAY, AND 3 TABLETS, 3 TIMES A DAY
  8. BENSERAZIDE\LEVODOPA [Suspect]
     Active Substance: BENSERAZIDE\LEVODOPA
     Indication: Parkinson^s disease
     Dosage: DR?200/50 MG - ONE TABLET AND A HALF, 5 TIMES A DAY
  9. BENSERAZIDE\LEVODOPA [Suspect]
     Active Substance: BENSERAZIDE\LEVODOPA
     Indication: Parkinson^s disease
     Dosage: DISPERSIBLE TABLETS?100/25 MG, 4 TIMES A DAY
  10. BENSERAZIDE\LEVODOPA [Suspect]
     Active Substance: BENSERAZIDE\LEVODOPA
     Indication: Parkinson^s disease
     Dosage: DR?200/50 MG - 2 TABLETS, 5 TIMES A DAY
  11. BENSERAZIDE\LEVODOPA [Suspect]
     Active Substance: BENSERAZIDE\LEVODOPA
     Indication: Parkinson^s disease
     Dosage: DR, 1 CAPSULE
  12. BENSERAZIDE\LEVODOPA [Suspect]
     Active Substance: BENSERAZIDE\LEVODOPA
     Indication: Parkinson^s disease
     Dosage: 100/25 MG
  13. AMANTADINE [Suspect]
     Active Substance: AMANTADINE
     Indication: Parkinson^s disease
     Dosage: 3 TIMES A DAY
  14. PRAMIPEXOLE [Suspect]
     Active Substance: PRAMIPEXOLE\PRAMIPEXOLE DIHYDROCHLORIDE
     Indication: Parkinson^s disease
     Dosage: 3 TIMES A DAY AT 7AM, 02 PM AND 10 PM
  15. PRAMIPEXOLE [Suspect]
     Active Substance: PRAMIPEXOLE\PRAMIPEXOLE DIHYDROCHLORIDE
     Indication: Parkinson^s disease
     Dosage: 4 TIMES A DAY AT 6 AM, 10 AM, 2 PM AND 6 PM.
  16. PRAMIPEXOLE [Suspect]
     Active Substance: PRAMIPEXOLE\PRAMIPEXOLE DIHYDROCHLORIDE
     Indication: Parkinson^s disease
     Dosage: 4 TIMES A DAY ?AT 6 AM, 10 AM, 2 PM AND 6 PM
  17. PRAMIPEXOLE [Suspect]
     Active Substance: PRAMIPEXOLE\PRAMIPEXOLE DIHYDROCHLORIDE
     Indication: Parkinson^s disease
     Dosage: 1 MG AND 0.5 MG, TWICE A DAY AND 1 MG, TWICE A DAY
  18. PRAMIPEXOLE [Suspect]
     Active Substance: PRAMIPEXOLE\PRAMIPEXOLE DIHYDROCHLORIDE
     Indication: Parkinson^s disease
     Dosage: HALF A TABLET, FOUR TIMES A DAY
  19. PRAMIPEXOLE [Suspect]
     Active Substance: PRAMIPEXOLE\PRAMIPEXOLE DIHYDROCHLORIDE
     Indication: Parkinson^s disease
     Dosage: 1 MG, TWICE A DAY AT 2 PM AND 6 PM
  20. ENTACAPONE [Suspect]
     Active Substance: ENTACAPONE
     Indication: Parkinson^s disease
     Dosage: 200 MG AT 06 AM, 10 AM, 02 PM AND 06 PM
  21. CLOZAPINE [Suspect]
     Active Substance: CLOZAPINE
     Indication: Product used for unknown indication
     Dosage: HALF A TABLET, EVERY 12 HOURS
  22. BIPERIDEN [Suspect]
     Active Substance: BIPERIDEN
     Indication: Parkinson^s disease

REACTIONS (17)
  - Psychotic disorder [Recovered/Resolved]
  - Dysphagia [Unknown]
  - On and off phenomenon [Unknown]
  - Inappropriate schedule of product administration [Unknown]
  - Musculoskeletal stiffness [Unknown]
  - Therapeutic response shortened [Unknown]
  - Dystonia [Unknown]
  - Tremor [Unknown]
  - On and off phenomenon [Unknown]
  - Dyskinesia [Unknown]
  - Balance disorder [Unknown]
  - Hallucination [Recovered/Resolved]
  - Bradykinesia [Unknown]
  - Resting tremor [Unknown]
  - Gait disturbance [Unknown]
  - Wheelchair user [Unknown]
  - Muscle rigidity [Unknown]
